FAERS Safety Report 12311112 (Version 2)
Quarter: 2016Q2

REPORT INFORMATION
  Report Type: Report from Study
  Country: US (occurrence: US)
  Receive Date: 20160427
  Receipt Date: 20160503
  Transmission Date: 20160815
  Serious: Yes (Hospitalization)
  Sender: FDA-Public Use
  Company Number: US-GILEAD-2016-0210405

PATIENT
  Age: 71 Year
  Sex: Female
  Weight: 84 kg

DRUGS (28)
  1. LANOXIN [Concomitant]
     Active Substance: DIGOXIN
  2. FLONASE [Concomitant]
     Active Substance: FLUTICASONE PROPIONATE
  3. BENZONATATE. [Concomitant]
     Active Substance: BENZONATATE
  4. ZOCOR [Concomitant]
     Active Substance: SIMVASTATIN
  5. ADCIRCA [Concomitant]
     Active Substance: TADALAFIL
  6. MICRO-K [Concomitant]
     Active Substance: POTASSIUM CHLORIDE
  7. SPIRIVA [Concomitant]
     Active Substance: TIOTROPIUM BROMIDE MONOHYDRATE
  8. FOLVITE                            /00024201/ [Concomitant]
  9. DULCOLAX (BISACODYL) [Concomitant]
     Active Substance: BISACODYL
  10. HALLS [Concomitant]
     Active Substance: MENTHOL
  11. DELTASONE [Concomitant]
     Active Substance: PREDNISONE
  12. ATIVAN [Concomitant]
     Active Substance: LORAZEPAM
  13. AMBRISENTAN [Suspect]
     Active Substance: AMBRISENTAN
     Indication: PULMONARY HYPERTENSION
     Dosage: 10 MG, QD
     Route: 048
     Dates: start: 20140524
  14. LOPRESSOR [Concomitant]
     Active Substance: METOPROLOL TARTRATE
  15. DESYREL [Concomitant]
     Active Substance: TRAZODONE HYDROCHLORIDE
  16. VIBRAMYCIN [Concomitant]
     Active Substance: DOXYCYCLINE
  17. PEPCID AC [Concomitant]
     Active Substance: FAMOTIDINE
  18. ORENITRAM [Concomitant]
     Active Substance: TREPROSTINIL
  19. LASIX [Concomitant]
     Active Substance: FUROSEMIDE
  20. BABY ASPIRIN [Concomitant]
     Active Substance: ASPIRIN
  21. TYLENOL [Concomitant]
     Active Substance: ACETAMINOPHEN
  22. DOCUSATE [Concomitant]
     Active Substance: DOCUSATE
  23. DUONEB [Concomitant]
     Active Substance: ALBUTEROL SULFATE\IPRATROPIUM BROMIDE
  24. CIALIS [Concomitant]
     Active Substance: TADALAFIL
  25. XARELTO [Concomitant]
     Active Substance: RIVAROXABAN
  26. ZANTAC [Concomitant]
     Active Substance: RANITIDINE HYDROCHLORIDE
  27. MILK OF MAGNESIA [Concomitant]
     Active Substance: MAGNESIUM HYDROXIDE
  28. ROBITUSSIN A C [Concomitant]

REACTIONS (1)
  - Respiratory syncytial virus infection [Recovered/Resolved]

NARRATIVE: CASE EVENT DATE: 20160412
